FAERS Safety Report 5300302-0 (Version None)
Quarter: 2007Q2

REPORT INFORMATION
  Report Type: 
  Country: None (occurrence: None)
  Receive Date: 20070418
  Receipt Date: 20070406
  Transmission Date: 20071010
  Serious: Yes (Other)
  Sender: FDA-Public Use
  Company Number: PHEH2002US09210

PATIENT
  Age: 21 Year
  Sex: Male

DRUGS (5)
  1. CLOZARIL [Suspect]
     Indication: BIPOLAR DISORDER
     Dosage: 150 MG, QD
     Route: 048
     Dates: start: 20020801
  2. DEPAKOTE [Concomitant]
     Dates: start: 20000101
  3. WELLBUTRIN [Concomitant]
     Dates: start: 20040101
  4. CONCERTA [Concomitant]
     Dates: start: 20030101
  5. CLOZAPINE [Suspect]
     Indication: BIPOLAR DISORDER
     Dosage: 75 MG, BID
     Route: 048

REACTIONS (6)
  - ASTHENIA [None]
  - DIPLOPIA [None]
  - HEADACHE [None]
  - HYPERSOMNIA [None]
  - MYASTHENIA GRAVIS [None]
  - TREMOR [None]
